FAERS Safety Report 9746140 (Version 1)
Quarter: 2013Q4

REPORT INFORMATION
  Report Type: Spontaneous
  Country: GB (occurrence: GB)
  Receive Date: 20131211
  Receipt Date: 20131211
  Transmission Date: 20140711
  Serious: No
  Sender: FDA-Public Use
  Company Number: GB-GILEAD-2009-0025893

PATIENT
  Age: 30 Year
  Sex: Male

DRUGS (8)
  1. ATRIPLA [Suspect]
     Dates: start: 200907
  2. DIHYDROCODEINE [Concomitant]
  3. NICOTINELL [Concomitant]
  4. CYCLIZINE [Concomitant]
  5. ZOPICLONE [Concomitant]
  6. PANTOPRAZOLE [Concomitant]
  7. CETIRIZINE [Concomitant]
  8. TAMIFLU [Concomitant]
     Dates: start: 200910

REACTIONS (1)
  - Gynaecomastia [Unknown]
